FAERS Safety Report 24801094 (Version 3)
Quarter: 2025Q3

REPORT INFORMATION
  Report Type: Spontaneous
  Country: EU (occurrence: EU)
  Receive Date: 20250102
  Receipt Date: 20250809
  Transmission Date: 20251021
  Serious: Yes (Hospitalization, Other)
  Sender: ALEXION PHARMACEUTICALS
  Company Number: EU-AMGEN-DEUSP2024249875

PATIENT
  Age: 71 Year
  Sex: Female

DRUGS (19)
  1. FULVESTRANT [Suspect]
     Active Substance: FULVESTRANT
     Indication: Breast cancer
  2. FULVESTRANT [Suspect]
     Active Substance: FULVESTRANT
  3. XGEVA [Suspect]
     Active Substance: DENOSUMAB
     Indication: Prophylaxis
  4. XGEVA [Suspect]
     Active Substance: DENOSUMAB
     Indication: Prophylaxis
     Dates: start: 20210317, end: 20230530
  5. XGEVA [Suspect]
     Active Substance: DENOSUMAB
     Dates: start: 20240822, end: 20240827
  6. XGEVA [Suspect]
     Active Substance: DENOSUMAB
     Dosage: 120 MILLIGRAM, QMO
  7. XGEVA [Suspect]
     Active Substance: DENOSUMAB
     Dosage: 120 MILLIGRAM, QMO
     Dates: start: 20210317, end: 20230530
  8. XGEVA [Suspect]
     Active Substance: DENOSUMAB
     Dosage: 120 MILLIGRAM, QMO
     Dates: start: 20230822, end: 20240827
  9. PALBOCICLIB [Suspect]
     Active Substance: PALBOCICLIB
     Indication: Breast cancer
     Dosage: 125 MILLIGRAM, QD (FROM DAY 1 TO DAY 21 EVERY 28-DAY CYCLE)
     Dates: start: 20210325
  10. ASPIRIN [Concomitant]
     Active Substance: ASPIRIN
     Indication: Prophylaxis
  11. ASPIRIN [Concomitant]
     Active Substance: ASPIRIN
  12. CHOLECALCIFEROL [Concomitant]
     Active Substance: CHOLECALCIFEROL
     Indication: Prophylaxis
  13. CHOLECALCIFEROL [Concomitant]
     Active Substance: CHOLECALCIFEROL
  14. LEVOTHYROXINE SODIUM [Concomitant]
     Active Substance: LEVOTHYROXINE SODIUM
     Indication: Hypothyroidism
  15. VALSARTAN [Concomitant]
     Active Substance: VALSARTAN
     Indication: Essential hypertension
  16. VALSARTAN [Concomitant]
     Active Substance: VALSARTAN
  17. ROSUVASTATIN [Concomitant]
     Active Substance: ROSUVASTATIN
     Indication: Hyperchloraemia
  18. ROSUVASTATIN [Concomitant]
     Active Substance: ROSUVASTATIN
  19. Helixor [Concomitant]
     Indication: Prophylaxis

REACTIONS (2)
  - Osteonecrosis of jaw [Recovered/Resolved]
  - Incorrect route of product administration [Unknown]

NARRATIVE: CASE EVENT DATE: 20210317
